FAERS Safety Report 20747582 (Version 5)
Quarter: 2024Q1

REPORT INFORMATION
  Report Type: Spontaneous
  Country: US (occurrence: US)
  Receive Date: 20220425
  Receipt Date: 20240313
  Transmission Date: 20240410
  Serious: No
  Sender: FDA-Public Use
  Company Number: US-SA-SAC20220421000236

PATIENT
  Sex: Female

DRUGS (1)
  1. DUPIXENT [Suspect]
     Active Substance: DUPILUMAB
     Indication: Dermatitis atopic
     Dosage: 300 MG, QOW
     Route: 058
     Dates: start: 20200104

REACTIONS (4)
  - Dermatitis atopic [Recovering/Resolving]
  - Rash [Recovering/Resolving]
  - Discomfort [Recovering/Resolving]
  - Sleep disorder due to a general medical condition [Recovering/Resolving]

NARRATIVE: CASE EVENT DATE: 20221101
